FAERS Safety Report 7279229-3 (Version None)
Quarter: 2011Q1

REPORT INFORMATION
  Report Type: 
  Country: None (occurrence: None)
  Receive Date: 20110207
  Receipt Date: 20110202
  Transmission Date: 20110831
  Serious: Yes (Death)
  Sender: FDA-Public Use
  Company Number: GB-ABBOTT-11P-167-0703073-00

PATIENT

DRUGS (1)
  1. ADALIMUMAB [Suspect]

REACTIONS (2)
  - DEHYDRATION [None]
  - MULTI-ORGAN FAILURE [None]
